FAERS Safety Report 5247314-3 (Version None)
Quarter: 2007Q1

REPORT INFORMATION
  Report Type: 
  Country: None (occurrence: None)
  Receive Date: 20070227
  Receipt Date: 20070219
  Transmission Date: 20070707
  Serious: Yes (Other)
  Sender: FDA-Public Use
  Company Number: CA-JNJFOC-20070104316

PATIENT
  Sex: Female
  Weight: 102.3 kg

DRUGS (1)
  1. REMICADE [Suspect]
     Indication: RHEUMATOID ARTHRITIS
     Route: 042

REACTIONS (11)
  - ASTHENIA [None]
  - CHAPPED LIPS [None]
  - ERYTHEMA [None]
  - FACE OEDEMA [None]
  - GLOSSITIS [None]
  - HOT FLUSH [None]
  - MOUTH ULCERATION [None]
  - PAROTITIS [None]
  - PHARYNGOLARYNGEAL PAIN [None]
  - RASH MACULO-PAPULAR [None]
  - THIRST [None]
